FAERS Safety Report 10194834 (Version 1)
Quarter: 2014Q2

REPORT INFORMATION
  Report Type: Report from Study
  Country: US (occurrence: US)
  Receive Date: 20140526
  Receipt Date: 20140526
  Transmission Date: 20141212
  Serious: No
  Sender: FDA-Public Use
  Company Number: US-ACTELION-A-US2014-99095

PATIENT
  Age: 30 Year
  Sex: Female

DRUGS (3)
  1. TRACLEER [Suspect]
     Indication: EXPOSURE VIA BODY FLUID
     Dosage: 125 MG, BID
     Route: 048
     Dates: start: 2012
  2. TRACLEER [Suspect]
     Dosage: 125 MG, QD
     Route: 048
     Dates: start: 2012, end: 2012
  3. VENTAVIS [Suspect]
     Indication: EXPOSURE VIA BODY FLUID
     Dosage: 6 PER DAY
     Route: 055
     Dates: start: 2012

REACTIONS (1)
  - Pregnancy of partner [Not Recovered/Not Resolved]
